FAERS Safety Report 12946753 (Version 1)
Quarter: 2016Q4

REPORT INFORMATION
  Report Type: Spontaneous
  Country: FR (occurrence: FR)
  Receive Date: 20161116
  Receipt Date: 20161116
  Transmission Date: 20170207
  Serious: Yes (Hospitalization)
  Sender: FDA-Public Use
  Company Number: PHHY2016FR154649

PATIENT
  Age: 65 Year
  Sex: Male

DRUGS (8)
  1. GENTAMICINE PANPHARMA [Concomitant]
     Active Substance: GENTAMICIN
     Indication: PRODUCT USED FOR UNKNOWN INDICATION
     Dosage: REDUCED DOSAGE ON 01 DEC 2014 (400 MG, 1 IN 1 DAY)
     Route: 042
     Dates: start: 20141120, end: 20141224
  2. KEPPRA [Concomitant]
     Active Substance: LEVETIRACETAM
     Indication: PRODUCT USED FOR UNKNOWN INDICATION
     Dosage: 1000 MG, QD  (500 MG, 2 IN 1 DAY)
     Route: 048
     Dates: start: 20141120, end: 20141219
  3. AMOXICILLIN CLAVULANIC ACID SANDOZ [Suspect]
     Active Substance: AMOXICILLIN\CLAVULANIC ACID
     Indication: PRODUCT USED FOR UNKNOWN INDICATION
     Dosage: 12 G QD (3 G EVERY 6 HOURS) (FORM STRENGTH: 2 G/200 MG ADULTES POWDER FOR SOLUTION FOR INFUSION
     Route: 042
     Dates: start: 20141120, end: 20141219
  4. ATARAX [Suspect]
     Active Substance: HYDROXYZINE\HYDROXYZINE HYDROCHLORIDE
     Indication: PRODUCT USED FOR UNKNOWN INDICATION
     Dosage: 25 MG QD (25 MG, 1 IN 1 DAY)
     Route: 048
     Dates: start: 20141120, end: 20141219
  5. BACLOFEN. [Suspect]
     Active Substance: BACLOFEN
     Indication: PRODUCT USED FOR UNKNOWN INDICATION
     Dosage: 15 MG, QD (5 MG, 3 IN 1 DAY)
     Route: 048
     Dates: start: 20141120, end: 20141219
  6. EUPANTOL [Suspect]
     Active Substance: PANTOPRAZOLE SODIUM
     Indication: PRODUCT USED FOR UNKNOWN INDICATION
     Dosage: 20 MG, QD (20 MG, 1 IN 1 DAY)
     Route: 048
     Dates: start: 20141120, end: 20141219
  7. OROZAMUDOL [Suspect]
     Active Substance: TRAMADOL
     Indication: PRODUCT USED FOR UNKNOWN INDICATION
     Dosage: 200 MG, QD (50 MG, 4 IN 1 DAY)
     Route: 048
     Dates: start: 20141120, end: 20141219
  8. IMIJECT [Concomitant]
     Active Substance: SUMATRIPTAN SUCCINATE
     Indication: PRODUCT USED FOR UNKNOWN INDICATION
     Dosage: 1 DF, PRN SOLUTION FOR INJECTION BY SUBCUTANEOUS ROUTE IN PRE-FILLED SERINGUE
     Route: 042
     Dates: start: 20141120, end: 20141219

REACTIONS (2)
  - Agranulocytosis [Recovered/Resolved]
  - Lymphopenia [Recovered/Resolved]

NARRATIVE: CASE EVENT DATE: 20141219
